FAERS Safety Report 9040578 (Version 1)
Quarter: 2013Q1

REPORT INFORMATION
  Report Type: Report from Study
  Country: US (occurrence: US)
  Receive Date: 20130129
  Receipt Date: 20130129
  Transmission Date: 20140127
  Serious: No
  Sender: FDA-Public Use
  Company Number: US-ABBOTT-12P-163-0890170-00

PATIENT
  Age: 40 Year
  Sex: Male

DRUGS (12)
  1. HUMIRA 40 MG/0.8 ML PEN [Suspect]
     Indication: CROHN^S DISEASE
     Dates: start: 201107
  2. METROGEL-VAGINAL [Concomitant]
     Indication: POUCHITIS
  3. CIPRO [Concomitant]
     Indication: INFLAMMATION
  4. CIPRO [Concomitant]
     Indication: INFECTION PROPHYLAXIS
  5. ALENDRONATE [Concomitant]
     Indication: BONE DISORDER
  6. CAL CARB [Concomitant]
     Indication: MINERAL SUPPLEMENTATION
     Dosage: DAILY
  7. VITAMIN D [Concomitant]
     Indication: PRODUCT USED FOR UNKNOWN INDICATION
     Dosage: 2 TABLETS DAILY
  8. PANCREATIC ENZYMES [Concomitant]
     Indication: PRODUCT USED FOR UNKNOWN INDICATION
     Dosage: 2-3 PILLS AFTER EACH MEAL
  9. WELLBUTRIN [Concomitant]
     Indication: ANXIETY
  10. PROMETHAZINE [Concomitant]
     Indication: NAUSEA
  11. NORCO [Concomitant]
     Indication: PAIN MANAGEMENT
     Dosage: 10/325MG TWICE DAILY
  12. MS CONTIN [Concomitant]
     Indication: PAIN MANAGEMENT

REACTIONS (2)
  - Arthralgia [Not Recovered/Not Resolved]
  - Hernia [Unknown]
